FAERS Safety Report 5812627-0 (Version None)
Quarter: 2008Q3

REPORT INFORMATION
  Report Type: 
  Country: None (occurrence: None)
  Receive Date: 20080717
  Receipt Date: 20080708
  Transmission Date: 20090109
  Serious: Yes (Life-Threatening, Hospitalization)
  Sender: FDA-Public Use
  Company Number: BG-TYCO HEALTHCARE/MALLINCKRODT-T200801125

PATIENT

DRUGS (7)
  1. OPTIRAY 300 [Suspect]
     Indication: ARTERIOGRAM CORONARY
     Dosage: 200 ML, UNK
     Route: 022
     Dates: start: 20080430, end: 20080430
  2. BLINDED STUDY DRUG [Suspect]
     Indication: PERCUTANEOUS CORONARY INTERVENTION
     Dosage: 5 ML. BOLUS, 6.7 ML INFUSION
     Route: 042
     Dates: start: 20080430, end: 20080430
  3. NEBIVOLOL HCL [Concomitant]
     Dates: start: 20080429
  4. ISOSORBIDE DINITRATE [Concomitant]
     Dates: start: 20080429
  5. HEPARIN [Concomitant]
     Dates: start: 20080429
  6. HEPARIN [Concomitant]
     Dosage: INFUSION
     Route: 042
     Dates: start: 20080430, end: 20080430
  7. HEPARIN [Concomitant]
     Dosage: 6.7 ML INFUSION
     Route: 042
     Dates: start: 20080430, end: 20080430

REACTIONS (2)
  - ACUTE PULMONARY OEDEMA [None]
  - HYPERTENSIVE CRISIS [None]
